FAERS Safety Report 4547187-8 (Version None)
Quarter: 2005Q1

REPORT INFORMATION
  Report Type: 
  Country: None (occurrence: None)
  Receive Date: 20050105
  Receipt Date: 20041223
  Transmission Date: 20050727
  Serious: Yes (Other)
  Sender: FDA-Public Use
  Company Number: 2004120036

PATIENT
  Sex: Male

DRUGS (1)
  1. NAVANE [Suspect]
     Indication: ILL-DEFINED DISORDER
     Route: 050

REACTIONS (3)
  - ANAEMIA [None]
  - AUTOIMMUNE DISORDER [None]
  - LEUKOPENIA [None]
